FAERS Safety Report 18385337 (Version 1)
Quarter: 2020Q4

REPORT INFORMATION
  Report Type: Spontaneous
  Country: US (occurrence: US)
  Receive Date: 20201015
  Receipt Date: 20201015
  Transmission Date: 20210114
  Serious: Yes (Other)
  Sender: FDA-Public Use
  Company Number: US-VIIV HEALTHCARE LIMITED-US2020GSK198454

PATIENT
  Sex: Female

DRUGS (3)
  1. LEVOTHYROXINE. [Suspect]
     Active Substance: LEVOTHYROXINE
     Indication: HYPOTHYROIDISM
     Dosage: 50 UG
  2. ABACAVIRSULPHATE+DOLUTEGRAVIR+LAMIVUDINE [Suspect]
     Active Substance: ABACAVIR SULFATE\DOLUTEGRAVIR SODIUM\LAMIVUDINE
     Indication: HIV INFECTION
     Dosage: UNK
  3. INTERFERON ALFA-N1. [Suspect]
     Active Substance: INTERFERON ALFA-N1
     Indication: HEPATITIS C
     Dosage: UNK

REACTIONS (11)
  - Basedow^s disease [Unknown]
  - Thyroxine free decreased [Recovered/Resolved]
  - Weight increased [Unknown]
  - Dry skin [Unknown]
  - Eyelid retraction [Unknown]
  - Exophthalmos [Unknown]
  - Asthenia [Unknown]
  - Hypothyroidism [Recovered/Resolved]
  - Blood thyroid stimulating hormone decreased [Recovered/Resolved]
  - Hyperthyroidism [Recovered/Resolved]
  - Blood thyroid stimulating hormone increased [Recovered/Resolved]

NARRATIVE: CASE EVENT DATE: 2004
